FAERS Safety Report 17617985 (Version 2)
Quarter: 2023Q1

REPORT INFORMATION
  Report Type: Spontaneous
  Country: US (occurrence: None)
  Receive Date: 20200402
  Receipt Date: 20230321
  Transmission Date: 20230417
  Serious: No
  Sender: FDA-Public Use
  Company Number: US-ROCHE-2358667

PATIENT
  Sex: Female

DRUGS (2)
  1. ERIVEDGE [Suspect]
     Active Substance: VISMODEGIB
     Indication: Dysmorphism
     Route: 048
     Dates: start: 201507
  2. ERIVEDGE [Suspect]
     Active Substance: VISMODEGIB
     Indication: Multiple congenital abnormalities

REACTIONS (3)
  - Off label use [Unknown]
  - Fatigue [Unknown]
  - Malaise [Unknown]
